FAERS Safety Report 10716430 (Version 1)
Quarter: 2015Q1

REPORT INFORMATION
  Report Type: Spontaneous
  Country: US (occurrence: US)
  Receive Date: 20150116
  Receipt Date: 20150116
  Transmission Date: 20150721
  Serious: Yes (Life-Threatening)
  Sender: FDA-Public Use
  Company Number: CHPA2015US000709

PATIENT
  Age: 70 Year
  Sex: Female

DRUGS (2)
  1. TRANSDERM SCOP [Suspect]
     Active Substance: SCOPOLAMINE
     Dosage: 1 DF, Q96H
     Route: 062
  2. TRANSDERM SCOP [Suspect]
     Active Substance: SCOPOLAMINE
     Indication: PROCEDURAL NAUSEA
     Dosage: 1 DF, Q72H
     Route: 062
     Dates: start: 20120228

REACTIONS (4)
  - Incorrect drug administration duration [Unknown]
  - Malaise [Unknown]
  - Therapeutic response unexpected [Unknown]
  - Product use issue [Unknown]
